FAERS Safety Report 11911607 (Version 2)
Quarter: 2016Q4

REPORT INFORMATION
  Report Type: Spontaneous
  Country: US (occurrence: US)
  Receive Date: 20160112
  Receipt Date: 20161118
  Transmission Date: 20170206
  Serious: Yes (Other)
  Sender: FDA-Public Use
  Company Number: US-ELI_LILLY_AND_COMPANY-US201601001014

PATIENT
  Sex: Female

DRUGS (2)
  1. CYMBALTA [Suspect]
     Active Substance: DULOXETINE HYDROCHLORIDE
     Indication: PAIN
     Dosage: UNK, UNKNOWN
     Route: 048
     Dates: start: 20130807
  2. CYMBALTA [Suspect]
     Active Substance: DULOXETINE HYDROCHLORIDE
     Indication: DEPRESSION
     Dosage: 60 MG, EACH MORNING
     Route: 048
     Dates: end: 201404

REACTIONS (21)
  - Memory impairment [Unknown]
  - Agitation [Unknown]
  - Sleep disorder [Unknown]
  - Disturbance in attention [Unknown]
  - Affect lability [Unknown]
  - Anxiety [Unknown]
  - Insomnia [Unknown]
  - Dysphoria [Unknown]
  - Irritability [Unknown]
  - Diarrhoea [Unknown]
  - Tearfulness [Unknown]
  - Drug withdrawal syndrome [Unknown]
  - Headache [Unknown]
  - Nausea [Unknown]
  - Fatigue [Unknown]
  - Paraesthesia [Unknown]
  - Confusional state [Unknown]
  - Aggression [Unknown]
  - Dizziness [Unknown]
  - Suicidal ideation [Unknown]
  - Vomiting [Unknown]
